FAERS Safety Report 15499837 (Version 1)
Quarter: 2018Q4

REPORT INFORMATION
  Report Type: Spontaneous
  Country: US (occurrence: US)
  Receive Date: 20181015
  Receipt Date: 20181015
  Transmission Date: 20190205
  Serious: Yes (Other)
  Sender: FDA-Public Use
  Company Number: US-PFIZER INC-2018405408

PATIENT
  Age: 74 Year
  Sex: Male
  Weight: 68.4 kg

DRUGS (2)
  1. PRIMATENE [Suspect]
     Active Substance: EPHEDRINE HYDROCHLORIDE\GUAIFENESIN
     Indication: EMPHYSEMA
     Dosage: UNK UNK, 1X/DAY [2-4 TABLETS A DAY, BUT OCCASIONALLY IT MAY BE MORE THAN THAT  ]
  2. ANORO ELLIPTA [Concomitant]
     Active Substance: UMECLIDINIUM BROMIDE\VILANTEROL TRIFENATATE
     Indication: EMPHYSEMA
     Dosage: UNK, 1X/DAY
     Route: 055

REACTIONS (3)
  - Back disorder [Unknown]
  - Product use in unapproved indication [Unknown]
  - Drug dependence [Unknown]

NARRATIVE: CASE EVENT DATE: 201809
